FAERS Safety Report 18371878 (Version 1)
Quarter: 2020Q4

REPORT INFORMATION
  Report Type: Spontaneous
  Country: US (occurrence: US)
  Receive Date: 20201012
  Receipt Date: 20201012
  Transmission Date: 20210114
  Serious: No
  Sender: FDA-Public Use
  Company Number: US-SA-2020SA277111

PATIENT

DRUGS (1)
  1. ALLEGRA ALLERGY [Suspect]
     Active Substance: FEXOFENADINE HYDROCHLORIDE
     Indication: HYPERSENSITIVITY
     Dosage: 1 DF, QD (DRUG STRUCTURE DOSAGE : 24HR DRUG INTERVAL DOSAGE : 1 TIME DRUG TREATMENT DURATION: 6 WEEK

REACTIONS (3)
  - Product colour issue [Unknown]
  - Product coating issue [Unknown]
  - Product contamination physical [Unknown]
